FAERS Safety Report 26149103 (Version 1)
Quarter: 2025Q4

REPORT INFORMATION
  Report Type: Spontaneous
  Country: EU (occurrence: EU)
  Receive Date: 20251212
  Receipt Date: 20251212
  Transmission Date: 20260118
  Serious: Yes (Hospitalization)
  Sender: RANBAXY
  Company Number: EU-AFSSAPS-BR2025000595

PATIENT
  Age: 77 Year
  Sex: Male

DRUGS (3)
  1. VENLAFAXINE [Suspect]
     Active Substance: VENLAFAXINE HYDROCHLORIDE
     Indication: Product administration error
     Dosage: 300 MILLIGRAM, TOTAL 1
     Route: 048
     Dates: start: 20250802, end: 20250802
  2. VENLAFAXINE [Suspect]
     Active Substance: VENLAFAXINE HYDROCHLORIDE
     Indication: Intentional overdose
  3. VENLAFAXINE [Suspect]
     Active Substance: VENLAFAXINE HYDROCHLORIDE
     Indication: Intentional product misuse

REACTIONS (5)
  - Serotonin syndrome [Recovered/Resolved]
  - Extrapyramidal disorder [Recovered/Resolved]
  - Electrocardiogram QT prolonged [Recovered/Resolved]
  - Product administration error [Recovered/Resolved]
  - Intentional overdose [Recovered/Resolved]

NARRATIVE: CASE EVENT DATE: 20250802
